FAERS Safety Report 8317766 (Version 4)
Quarter: 2013Q2

REPORT INFORMATION
  Report Type: Report from Study
  Country: US (occurrence: US)
  Receive Date: 20120102
  Receipt Date: 20130430
  Transmission Date: 20140414
  Serious: Yes (Other)
  Sender: FDA-Public Use
  Company Number: US-ROCHE-1017815

PATIENT
  Age: 63 Year
  Sex: Male
  Weight: 61.8 kg

DRUGS (6)
  1. VEMURAFENIB [Suspect]
     Indication: METASTATIC MALIGNANT MELANOMA
     Dosage: LAST DOSE PRIOR TO SAE: 19/JUL/2011
     Route: 048
     Dates: start: 20100921
  2. BENAZEPRIL [Concomitant]
     Indication: BLOOD PRESSURE
     Route: 048
     Dates: start: 20070106
  3. LORATADINE [Concomitant]
     Indication: HYPERSENSITIVITY
     Route: 048
     Dates: start: 200912
  4. ASPIRIN [Concomitant]
     Indication: MYALGIA
     Route: 048
     Dates: start: 200912
  5. ASPIRIN [Concomitant]
     Indication: MYALGIA
     Route: 048
     Dates: start: 1995, end: 20091201
  6. FISH OIL [Concomitant]
     Route: 048
     Dates: start: 20090107, end: 20091201

REACTIONS (1)
  - Squamous cell carcinoma of the tongue [Not Recovered/Not Resolved]
